FAERS Safety Report 17034801 (Version 1)
Quarter: 2019Q4

REPORT INFORMATION
  Report Type: Spontaneous
  Country: TR (occurrence: TR)
  Receive Date: 20191115
  Receipt Date: 20191115
  Transmission Date: 20200122
  Serious: Yes (Congenital Anomaly, Other)
  Sender: FDA-Public Use
  Company Number: TR-HRAPH01-201900471

PATIENT
  Age: 0 Year
  Sex: Female
  Weight: 1.9 kg

DRUGS (1)
  1. ELLA [Suspect]
     Active Substance: ULIPRISTAL ACETATE
     Indication: EXPOSURE DURING PREGNANCY
     Route: 064
     Dates: start: 201810, end: 201810

REACTIONS (3)
  - Congenital torticollis [Unknown]
  - Maternal exposure during pregnancy [Recovered/Resolved]
  - Premature baby [Recovered/Resolved]

NARRATIVE: CASE EVENT DATE: 201810
